FAERS Safety Report 5385527-0 (Version None)
Quarter: 2007Q3

REPORT INFORMATION
  Report Type: 
  Country: None (occurrence: None)
  Receive Date: 20070709
  Receipt Date: 20070625
  Transmission Date: 20080115
  Serious: Yes (Hospitalization)
  Sender: FDA-Public Use
  Company Number: 2007325310

PATIENT
  Age: 26 Year
  Sex: Female

DRUGS (1)
  1. MINOXIDIL [Suspect]
     Dosage: UNSPECIFIED, TOPICAL
     Route: 061
     Dates: start: 20070623

REACTIONS (1)
  - HYPERSENSITIVITY [None]
